FAERS Safety Report 8195759-4 (Version None)
Quarter: 2012Q1

REPORT INFORMATION
  Report Type: 
  Country: None (occurrence: None)
  Receive Date: 20120308
  Receipt Date: 20120302
  Transmission Date: 20120608
  Serious: Yes (Other)
  Sender: FDA-Public Use
  Company Number: US-PFIZER INC-2012015366

PATIENT
  Age: 62 Year
  Sex: Male

DRUGS (3)
  1. TRAVATAN [Suspect]
     Dosage: 0.004 %, UNK
     Route: 047
  2. XALATAN [Suspect]
     Dosage: UNK
  3. TRAVOPROST [Suspect]
     Dosage: UNK

REACTIONS (3)
  - PROSTATE INFECTION [None]
  - PROSTATITIS [None]
  - URINARY TRACT INFECTION [None]
